FAERS Safety Report 24376628 (Version 1)
Quarter: 2024Q3

REPORT INFORMATION
  Report Type: Spontaneous
  Country: US (occurrence: US)
  Receive Date: 20240930
  Receipt Date: 20240930
  Transmission Date: 20241016
  Serious: Yes (Other)
  Sender: CENTRAL ADMIXTURE PHARMACY SERVICES, INC
  Company Number: US-Central Admixture Pharmacy Services, Inc.-2162219

PATIENT
  Sex: Male
  Weight: 2.0455 kg

DRUGS (1)
  1. AMINO ACIDS\CALCIUM GLUCONATE MONOHYDRATE\DEXTROSE MONOHYDRATE\HEPARIN [Suspect]
     Active Substance: AMINO ACIDS\CALCIUM GLUCONATE MONOHYDRATE\DEXTROSE MONOHYDRATE\HEPARIN SODIUM
     Indication: Parenteral nutrition

REACTIONS (1)
  - Hyperglycaemia [Recovered/Resolved]
